FAERS Safety Report 15863280 (Version 2)
Quarter: 2019Q1

REPORT INFORMATION
  Report Type: Spontaneous
  Country: GB (occurrence: GB)
  Receive Date: 20190124
  Receipt Date: 20190319
  Transmission Date: 20190417
  Serious: Yes (Other)
  Sender: FDA-Public Use
  Company Number: GB-MYLANLABS-2019M1006289

PATIENT
  Age: 18 Year
  Sex: Male
  Weight: 42 kg

DRUGS (17)
  1. DIAZEPAM. [Interacting]
     Active Substance: DIAZEPAM
     Indication: PROCEDURAL ANXIETY
  2. MAGNESIUM SULFATE. [Interacting]
     Active Substance: MAGNESIUM SULFATE
     Indication: PRODUCT USED FOR UNKNOWN INDICATION
     Dosage: 2.5 GRAM, Q6H
  3. PROPOFOL. [Interacting]
     Active Substance: PROPOFOL
     Indication: ANAESTHESIA
     Dosage: 3.3 MICROGRAM PER MILLIGRAM, QD
     Route: 042
     Dates: start: 20180514, end: 20180514
  4. FENTANYL. [Suspect]
     Active Substance: FENTANYL
     Indication: PRODUCT USED FOR UNKNOWN INDICATION
     Dosage: 100 MICROGRAM, TOTAL
  5. CLONIDINE. [Interacting]
     Active Substance: CLONIDINE
     Indication: SEDATION
     Dosage: 60 MICROGRAM, TOTAL,4 ALIQUOTS OF 15 MICROGRAMS OVER SEVERAL HOURS
     Route: 042
     Dates: start: 20180514, end: 20180514
  6. PROPOFOL. [Interacting]
     Active Substance: PROPOFOL
     Indication: SEDATION
  7. KETAMINE [Interacting]
     Active Substance: KETAMINE
     Indication: SEDATION
     Dosage: 50 MILLIGRAM, TOTAL,25 MG BEFORE SKIN INCISION AND 25 MG ABOUT AN OUR BEFORE THE END OF SURGERY.
     Route: 042
     Dates: start: 20180514, end: 20180514
  8. FENTANYL. [Interacting]
     Active Substance: FENTANYL
     Indication: SEDATION
     Dosage: 100 MICROGRAM, TOTAL
     Route: 042
     Dates: start: 20180514, end: 20180516
  9. GABAPENTIN. [Interacting]
     Active Substance: GABAPENTIN
     Indication: PRODUCT USED FOR UNKNOWN INDICATION
     Dosage: 600 MILLIGRAM, TOTAL,THE NIGHT BEFORE SURGERY AND ON THE MORNING OF SURGERY,
     Dates: start: 20180513, end: 20180515
  10. GABAPENTIN. [Interacting]
     Active Substance: GABAPENTIN
     Dosage: 900 MILLIGRAM, QD
     Dates: start: 20180513, end: 20180515
  11. TRANEXAMIC ACID. [Interacting]
     Active Substance: TRANEXAMIC ACID
     Indication: PRODUCT USED FOR UNKNOWN INDICATION
     Dosage: UNK
  12. DIAZEPAM. [Interacting]
     Active Substance: DIAZEPAM
     Indication: ANXIETY
     Dosage: 3.5 MILLIGRAM, QD
     Dates: start: 20180513, end: 20180513
  13. REMIFENTANIL [Interacting]
     Active Substance: REMIFENTANIL
     Dosage: 0.14 MICROGRAM/KILOGRAM,PER MINUTE
     Route: 042
     Dates: start: 20180514, end: 20180514
  14. MIDAZOLAM [Interacting]
     Active Substance: MIDAZOLAM HYDROCHLORIDE
     Indication: ANXIETY
     Dosage: 20 MILLIGRAM,HALF AN HOUR BEFORE INDUCTION OF ANAESTHESIA
     Dates: start: 20180514, end: 20180514
  15. REMIFENTANIL [Interacting]
     Active Substance: REMIFENTANIL
     Indication: SEDATION
     Dosage: 0.14 MICROGRAM/KILOGRAM,PER MINUTE
     Route: 042
  16. MIDAZOLAM [Interacting]
     Active Substance: MIDAZOLAM HYDROCHLORIDE
     Indication: INDUCTION OF ANAESTHESIA
  17. TRANEXAMIC ACID. [Interacting]
     Active Substance: TRANEXAMIC ACID
     Indication: SEDATION
     Dosage: UNK
     Route: 042
     Dates: start: 20180514, end: 20180514

REACTIONS (7)
  - Somnolence [Recovered/Resolved]
  - Disorientation [Recovered/Resolved]
  - Aphasia [Recovered/Resolved]
  - Drug interaction [Unknown]
  - Confusional state [Recovered/Resolved]
  - Delirium [Recovered/Resolved]
  - Nystagmus [Recovered/Resolved]

NARRATIVE: CASE EVENT DATE: 20180514
